FAERS Safety Report 6740789-X (Version None)
Quarter: 2010Q2

REPORT INFORMATION
  Report Type: 
  Country: None (occurrence: None)
  Receive Date: 20100525
  Receipt Date: 20100525
  Transmission Date: 20101027
  Serious: Yes (Hospitalization)
  Sender: FDA-Public Use
  Company Number: None

PATIENT
  Age: 57 Year
  Sex: Male
  Weight: 104.55 kg

DRUGS (1)
  1. AMIODARONE HYDROCHLORIDE [Suspect]
     Indication: ATRIAL FIBRILLATION
     Dosage: 150 MG ONCE IV
     Route: 042
     Dates: start: 20100524, end: 20100524

REACTIONS (3)
  - ANAPHYLACTIC REACTION [None]
  - ANXIETY [None]
  - DRUG HYPERSENSITIVITY [None]
